FAERS Safety Report 9056769 (Version 2)
Quarter: 2013Q1

REPORT INFORMATION
  Report Type: Report from Study
  Country: CA (occurrence: CA)
  Receive Date: 20130201
  Receipt Date: 20130212
  Transmission Date: 20140127
  Serious: Yes (Hospitalization)
  Sender: FDA-Public Use
  Company Number: CA-JNJFOC-20130113005

PATIENT
  Age: 54 None
  Sex: Female
  Weight: 52 kg

DRUGS (19)
  1. REMICADE [Suspect]
     Indication: RHEUMATOID ARTHRITIS
     Route: 042
     Dates: start: 20130122
  2. REMICADE [Suspect]
     Indication: RHEUMATOID ARTHRITIS
     Route: 042
     Dates: start: 201103
  3. ALL OTHER THERAPEUTICS [Suspect]
     Indication: HEART RATE INCREASED
     Route: 065
     Dates: start: 201301
  4. HYDROMORPH [Concomitant]
     Route: 065
  5. ASA [Concomitant]
     Route: 065
  6. RANITIDINE [Concomitant]
     Route: 065
  7. PREDNISONE [Concomitant]
     Route: 065
  8. FOLIC ACID [Concomitant]
     Route: 065
  9. HYDROCHLOROTHIAZIDE [Concomitant]
     Route: 065
  10. TRIMEBUTINE [Concomitant]
     Route: 065
  11. BUSCOPAN [Concomitant]
     Route: 065
  12. RAMIPRIL [Concomitant]
     Route: 065
  13. METFORMIN [Concomitant]
     Route: 065
  14. METHOTREXATE [Concomitant]
     Route: 065
  15. CALCIUM [Concomitant]
     Route: 065
  16. ESTROGEN [Concomitant]
     Route: 065
  17. FLEXERIL [Concomitant]
     Route: 065
  18. GLICLAZIDE [Concomitant]
     Route: 065
  19. ZOPICLONE [Concomitant]
     Route: 065

REACTIONS (2)
  - Chest discomfort [Recovered/Resolved]
  - Heart rate increased [Recovering/Resolving]
